FAERS Safety Report 5141056-0 (Version None)
Quarter: 2006Q4

REPORT INFORMATION
  Report Type: 
  Country: None (occurrence: None)
  Receive Date: 20061026
  Receipt Date: 20061017
  Transmission Date: 20070319
  Serious: Yes (Other)
  Sender: FDA-Public Use
  Company Number: 2006113002

PATIENT
  Age: 46 Year
  Sex: Female
  Weight: 65.7716 kg

DRUGS (7)
  1. LYRICA [Suspect]
     Dosage: 600 MG (300 MG, 2 IN 1 D), ORAL
     Route: 048
     Dates: start: 20060720
  2. DRUG, UNSPECIFIED (DRUG, UNSPECIFIED) [Suspect]
  3. ZANAFLEX [Concomitant]
  4. SYNTHROID [Concomitant]
  5. CIPRALEX (ESCITALOPRAM) [Concomitant]
  6. XENICAL [Concomitant]
  7. CLONAZEPAM [Suspect]

REACTIONS (2)
  - CONVULSION [None]
  - DYSKINESIA [None]
